FAERS Safety Report 21573902 (Version 1)
Quarter: 2022Q4

REPORT INFORMATION
  Report Type: Report from Study
  Country: US (occurrence: US)
  Receive Date: 20221109
  Receipt Date: 20221109
  Transmission Date: 20230112
  Serious: No
  Sender: FDA-Public Use
  Company Number: US-ABBVIE-4137482

PATIENT
  Age: 68 Year
  Sex: Male

DRUGS (1)
  1. HUMIRA [Suspect]
     Active Substance: ADALIMUMAB
     Indication: Crohn^s disease
     Route: 058

REACTIONS (6)
  - Spinal stenosis [Not Recovered/Not Resolved]
  - Asthenia [Unknown]
  - Sciatica [Unknown]
  - Nervous system disorder [Unknown]
  - Neuropathy peripheral [Unknown]
  - COVID-19 [Unknown]

NARRATIVE: CASE EVENT DATE: 20220701
